FAERS Safety Report 4894703-2 (Version None)
Quarter: 2006Q1

REPORT INFORMATION
  Report Type: 
  Country: None (occurrence: None)
  Receive Date: 20060127
  Receipt Date: 20060127
  Transmission Date: 20060701
  Serious: Yes (Hospitalization)
  Sender: FDA-Public Use
  Company Number: None

PATIENT
  Age: 45 Year
  Sex: Female
  Weight: 59.8748 kg

DRUGS (15)
  1. TAXOTERE [Suspect]
     Indication: BREAST CANCER
     Dosage: 100 MG/M2 Q2 WKS IV (164 MG)
     Route: 042
     Dates: start: 20051019
  2. TAXOTERE [Suspect]
     Indication: BREAST CANCER
     Dosage: 100 MG/M2 Q2 WKS IV (164 MG)
     Route: 042
     Dates: start: 20051102
  3. TAXOTERE [Suspect]
     Indication: BREAST CANCER
     Dosage: 100 MG/M2 Q2 WKS IV (164 MG)
     Route: 042
     Dates: start: 20051116
  4. TAXOTERE [Suspect]
     Indication: BREAST CANCER
     Dosage: 100 MG/M2 Q2 WKS IV (164 MG)
     Route: 042
     Dates: start: 20051130
  5. DECADRON [Concomitant]
  6. NORCO [Concomitant]
  7. MS CONTIN [Concomitant]
  8. NEURONTIN [Concomitant]
  9. RESTORIL [Concomitant]
  10. EFFEXOR [Concomitant]
  11. ZADITOR [Concomitant]
  12. IMODIUM [Concomitant]
  13. PHENERGAN [Concomitant]
  14. HYDROCORTIZONE CREAM [Concomitant]
  15. NEULASTA [Concomitant]

REACTIONS (1)
  - CENTRAL LINE INFECTION [None]
